FAERS Safety Report 25873486 (Version 1)
Quarter: 2025Q4

REPORT INFORMATION
  Report Type: Spontaneous
  Country: CN (occurrence: CN)
  Receive Date: 20251002
  Receipt Date: 20251002
  Transmission Date: 20260117
  Serious: Yes (Life-Threatening)
  Sender: ASTELLAS
  Company Number: CN-ASTELLAS-2025-AER-054557

PATIENT
  Age: 61 Year
  Sex: Male
  Weight: 60 kg

DRUGS (1)
  1. ISAVUCONAZOLE [Suspect]
     Active Substance: ISAVUCONAZOLE
     Indication: Candida infection
     Dosage: CONCENTRATE FOR SOLUTION FOR INFUSION
     Route: 042
     Dates: start: 20250906, end: 20250906

REACTIONS (5)
  - Confusional state [Recovered/Resolved]
  - Infusion related reaction [Recovered/Resolved]
  - Mydriasis [Recovered/Resolved]
  - Apnoea [Recovered/Resolved]
  - Off label use [Unknown]

NARRATIVE: CASE EVENT DATE: 20250906
